FAERS Safety Report 22380313 (Version 1)
Quarter: 2023Q2

REPORT INFORMATION
  Report Type: Spontaneous
  Country: DE (occurrence: DE)
  Receive Date: 20230529
  Receipt Date: 20230529
  Transmission Date: 20230721
  Serious: Yes (Hospitalization, Other)
  Sender: FDA-Public Use
  Company Number: DE-BAXTER-2023BAX022254

PATIENT

DRUGS (8)
  1. DEXAMETHASONE [Suspect]
     Active Substance: DEXAMETHASONE
     Indication: Plasma cell myeloma
     Dosage: UNK, START DATE: JUL2021, STOP DATE: APR2022 (SECOND LINE)
     Route: 065
     Dates: start: 202107, end: 202204
  2. DEXAMETHASONE [Suspect]
     Active Substance: DEXAMETHASONE
     Dosage: UNK, START DATE: JAN2023- ONGOING (FOURTH LINE, BRIDGING REGIMEN)
     Dates: start: 202301
  3. CARFILZOMIB [Suspect]
     Active Substance: CARFILZOMIB
     Indication: Plasma cell myeloma
     Dosage: UNK, START DATE: JAN2023- ONGOING (FOURTH LINE, BRIDGING REGIMEN)
     Route: 065
     Dates: start: 202301
  4. LENALIDOMIDE [Suspect]
     Active Substance: LENALIDOMIDE
     Indication: Plasma cell myeloma
     Dosage: UNK, START DATE: JUL2021, STOP DATE: APR2022 (SECOND LINE)
     Route: 065
     Dates: start: 202107, end: 202204
  5. CYCLOPHOSPHAMIDE [Suspect]
     Active Substance: CYCLOPHOSPHAMIDE
     Indication: Plasma cell myeloma
     Dosage: UNK, START DATE: JUL2021, STOP DATE: APR2022 (SECOND LINE)
     Route: 065
     Dates: start: 202107, end: 202204
  6. DARATUMUMAB [Suspect]
     Active Substance: DARATUMUMAB
     Indication: Plasma cell myeloma
     Dosage: UNK, START DATE: JAN2023- ONGOING (FOURTH LINE, BRIDGING REGIMEN)
     Route: 065
     Dates: start: 202301
  7. DOXORUBICIN [Suspect]
     Active Substance: DOXORUBICIN
     Indication: Plasma cell myeloma
     Dosage: UNK, START DATE: JAN2023- ONGOING (FOURTH LINE, BRIDGING REGIMEN)
     Route: 065
     Dates: start: 202301
  8. THALIDOMIDE [Suspect]
     Active Substance: THALIDOMIDE
     Indication: Plasma cell myeloma
     Dosage: UNK, START TIME: DEC2022 (THIRD LINE)
     Route: 065
     Dates: start: 202212

REACTIONS (3)
  - Pancytopenia [Not Recovered/Not Resolved]
  - Infection [Recovered/Resolved]
  - Refractory cancer [Unknown]
